FAERS Safety Report 7888752-X (Version None)
Quarter: 2011Q4

REPORT INFORMATION
  Report Type: 
  Country: None (occurrence: None)
  Receive Date: 20111103
  Receipt Date: 20111021
  Transmission Date: 20120403
  Serious: Yes (Hospitalization)
  Sender: FDA-Public Use
  Company Number: JP-ELI_LILLY_AND_COMPANY-JP201110006341

PATIENT
  Age: 65 Year
  Sex: Female

DRUGS (2)
  1. SYMMETREL [Concomitant]
     Dosage: UNK
     Route: 048
  2. FORTEO [Suspect]
     Dosage: UNK
     Route: 058
     Dates: start: 20110401

REACTIONS (3)
  - TREMOR [None]
  - AFFECTIVE DISORDER [None]
  - HOSPITALISATION [None]
